FAERS Safety Report 7043640-6 (Version None)
Quarter: 2010Q4

REPORT INFORMATION
  Report Type: 
  Country: None (occurrence: None)
  Receive Date: 20101013
  Receipt Date: 20101007
  Transmission Date: 20110411
  Serious: Yes (Hospitalization)
  Sender: FDA-Public Use
  Company Number: R0012793A

PATIENT
  Sex: Male

DRUGS (4)
  1. PANDEMRIX H1N1 [Suspect]
     Dosage: 3.75MCG PER DAY
     Route: 030
     Dates: start: 20091112, end: 20091112
  2. AVANDAMET [Suspect]
     Indication: DIABETES MELLITUS
     Dosage: 8MG PER DAY
     Route: 048
     Dates: start: 20080508, end: 20100721
  3. DIPHTHERIA TETANUS POLIO VACCINE [Concomitant]
     Dates: start: 20080218, end: 20080218
  4. SEASONAL INFLUENZA VACCINE [Concomitant]
     Dates: start: 20091003, end: 20091003

REACTIONS (2)
  - ANGINA PECTORIS [None]
  - CARDIAC FAILURE CONGESTIVE [None]
